FAERS Safety Report 25499256 (Version 1)
Quarter: 2025Q2

REPORT INFORMATION
  Report Type: Spontaneous
  Country: US (occurrence: None)
  Receive Date: 20250630
  Receipt Date: 20250630
  Transmission Date: 20250716
  Serious: Yes (Life-Threatening)
  Sender: FDA-CTU
  Company Number: None

PATIENT
  Age: 54 Year
  Sex: Female
  Weight: 97.98 kg

DRUGS (1)
  1. MAVYRET [Suspect]
     Active Substance: GLECAPREVIR\PIBRENTASVIR
     Indication: Chronic hepatitis B

REACTIONS (8)
  - Diarrhoea [None]
  - Nausea [None]
  - Headache [None]
  - Constipation [None]
  - Impetigo [None]
  - Contusion [None]
  - Fatigue [None]
  - Pruritus [None]
